FAERS Safety Report 25203153 (Version 1)
Quarter: 2025Q2

REPORT INFORMATION
  Report Type: Spontaneous
  Country: US (occurrence: None)
  Receive Date: 20250415
  Receipt Date: 20250415
  Transmission Date: 20250717
  Serious: Yes (Life-Threatening, Hospitalization)
  Sender: FDA-CTU
  Company Number: None

PATIENT
  Age: 57 Year
  Sex: Male
  Weight: 87.75 kg

DRUGS (1)
  1. BACLOFEN\MORPHINE [Suspect]
     Active Substance: BACLOFEN\MORPHINE
     Indication: Spinal stenosis
     Route: 050
     Dates: start: 20250409, end: 20250413

REACTIONS (8)
  - Withdrawal syndrome [None]
  - Dyskinesia [None]
  - Pyrexia [None]
  - Dyspnoea [None]
  - Cardiac disorder [None]
  - Product preparation error [None]
  - Hallucination [None]
  - White blood cell count increased [None]

NARRATIVE: CASE EVENT DATE: 20250409
